FAERS Safety Report 5914018-0 (Version None)
Quarter: 2008Q4

REPORT INFORMATION
  Report Type: 
  Country: None (occurrence: None)
  Receive Date: 20081009
  Receipt Date: 20081008
  Transmission Date: 20090506
  Serious: Yes (Death, Hospitalization)
  Sender: FDA-Public Use
  Company Number: US-BRISTOL-MYERS SQUIBB COMPANY-13854443

PATIENT
  Age: 61 Year
  Sex: Male
  Weight: 90 kg

DRUGS (16)
  1. CARBOPLATIN [Suspect]
     Indication: NON-SMALL CELL LUNG CANCER
     Dosage: INITIAL DOSE TAKEN ON 05JUN07, LAST DOSE ON 17-JUL-07
     Route: 042
     Dates: start: 20070626, end: 20070626
  2. PEMETREXED DISODIUM [Suspect]
     Indication: NON-SMALL CELL LUNG CANCER
     Dosage: INITIAL DOSE GIVEN ON 05JUN07 STOP DATE:18-SEP-2008 DURATION:106DAYS
     Route: 042
     Dates: start: 20070626, end: 20070626
  3. RADIATION THERAPY [Suspect]
     Indication: NON-SMALL CELL LUNG CANCER
     Dosage: INITIAL DOSE GIVEN ON 05JUN07 DRUG INTERRUPTED ON 02-JUL-2007 AND RESTART IN 09-JUL-2007
     Dates: start: 20070605, end: 20070731
  4. FOLIC ACID [Concomitant]
     Dates: end: 20071015
  5. VITAMIN B-12 [Concomitant]
     Dates: end: 20070918
  6. ATENOLOL [Concomitant]
     Dates: end: 20070702
  7. LEVOTHYROXINE SODIUM [Concomitant]
  8. ACTOS [Concomitant]
     Dates: end: 20070702
  9. GLIPIZIDE [Concomitant]
  10. METFORMIN HCL [Concomitant]
     Dates: end: 20070702
  11. SIMVASTATIN [Concomitant]
  12. ASPIRIN [Concomitant]
  13. POTASSIUM CHLORIDE [Concomitant]
  14. DEXAMETHASONE [Concomitant]
     Indication: INFLAMMATION
     Dates: start: 20070604
  15. XANAX [Concomitant]
  16. SPIRIVA [Concomitant]

REACTIONS (6)
  - ANAEMIA [None]
  - ATRIAL FIBRILLATION [None]
  - DEHYDRATION [None]
  - HYPOVOLAEMIC SHOCK [None]
  - MALIGNANT NEOPLASM PROGRESSION [None]
  - NEUTROPENIA [None]
